FAERS Safety Report 13131862 (Version 2)
Quarter: 2017Q4

REPORT INFORMATION
  Report Type: Report from Study
  Country: US (occurrence: US)
  Receive Date: 20170119
  Receipt Date: 20171010
  Transmission Date: 20180320
  Serious: Yes (Life-Threatening, Other)
  Sender: FDA-Public Use
  Company Number: US-BAUSCH-BL-2017-001494

PATIENT
  Age: 69 Year
  Sex: Female

DRUGS (3)
  1. XENAZINE [Suspect]
     Active Substance: TETRABENAZINE
     Dosage: CURRENT DOSE
     Route: 048
  2. XENAZINE [Suspect]
     Active Substance: TETRABENAZINE
     Indication: TARDIVE DYSKINESIA
     Dosage: 1 TABLET BY MOUTH EVERY 3 HOURS UP TO 5 TIMES DAILY.
     Route: 048
     Dates: start: 201602
  3. XENAZINE [Suspect]
     Active Substance: TETRABENAZINE
     Indication: CHOREA
     Route: 048
     Dates: start: 1997

REACTIONS (6)
  - Prescribed overdose [Unknown]
  - Hip arthroplasty [Unknown]
  - Fall [Unknown]
  - Depression [Unknown]
  - Rib fracture [Unknown]
  - Suicidal ideation [Unknown]

NARRATIVE: CASE EVENT DATE: 20161205
